FAERS Safety Report 10846544 (Version 2)
Quarter: 2015Q1

REPORT INFORMATION
  Report Type: Spontaneous
  Country: GR (occurrence: GR)
  Receive Date: 20150220
  Receipt Date: 20150303
  Transmission Date: 20150721
  Serious: Yes (Other)
  Sender: FDA-Public Use
  Company Number: GR-GLAXOSMITHKLINE-GR2015020306

PATIENT
  Age: 57 Year
  Sex: Male
  Weight: 71 kg

DRUGS (2)
  1. FLUTICASONE [Suspect]
     Active Substance: FLUTICASONE\FLUTICASONE PROPIONATE
     Indication: INCREASED BRONCHIAL SECRETION
     Dosage: 1 DOSAGE FORM IN THE MORNING AND 1 DOSAGE FORM IN THE EVENING
     Route: 045
     Dates: start: 20011020, end: 200112
  2. CLENIL [Suspect]
     Active Substance: BECLOMETHASONE DIPROPIONATE
     Indication: INCREASED BRONCHIAL SECRETION
     Dosage: 1 DOSAGE FORM IN THE MORNING AND 1 DOSAGE FORM IN THE EVENING
     Route: 055
     Dates: start: 20011020, end: 200112

REACTIONS (5)
  - Chest discomfort [Recovered/Resolved]
  - Oesophageal pain [Recovered/Resolved]
  - Glossodynia [Not Recovered/Not Resolved]
  - Increased bronchial secretion [Not Recovered/Not Resolved]
  - Dysphonia [Recovered/Resolved]

NARRATIVE: CASE EVENT DATE: 20011024
